FAERS Safety Report 10205392 (Version 1)
Quarter: 2014Q2

REPORT INFORMATION
  Report Type: Spontaneous
  Country: US (occurrence: US)
  Receive Date: 20140529
  Receipt Date: 20140529
  Transmission Date: 20141212
  Serious: No
  Sender: FDA-Public Use
  Company Number: US-SA-2014SA050747

PATIENT
  Age: 64 Year
  Sex: Male

DRUGS (2)
  1. SOLOSTAR [Suspect]
     Indication: TYPE 2 DIABETES MELLITUS
  2. LANTUS SOLOSTAR [Suspect]
     Indication: TYPE 2 DIABETES MELLITUS
     Dosage: DOSE:40/30 UNITS NOT SPECIFIED?DAILY DOSE:70 UNITS NOT SPECIFIED
     Route: 065

REACTIONS (3)
  - Injection site pain [Unknown]
  - Injection site mass [Unknown]
  - Drug administration error [Unknown]
